FAERS Safety Report 7540784-7 (Version None)
Quarter: 2011Q2

REPORT INFORMATION
  Report Type: 
  Country: None (occurrence: None)
  Receive Date: 20110610
  Receipt Date: 20110601
  Transmission Date: 20111010
  Serious: Yes (Hospitalization, Other)
  Sender: FDA-Public Use
  Company Number: JP-ROCHE-780682

PATIENT
  Age: 16 Year
  Sex: Female

DRUGS (12)
  1. PREDNISOLONE [Suspect]
     Dosage: FORM: PERORAL AGENT, NOTE: 2.527 MG
     Route: 048
     Dates: end: 20070716
  2. MYCOPHENOLATE MEFETIL [Suspect]
     Route: 048
     Dates: start: 20051226, end: 20060510
  3. MYCOPHENOLATE MEFETIL [Suspect]
     Route: 048
     Dates: start: 20060511, end: 20071004
  4. ENALAPRIL MALEATE [Concomitant]
     Route: 048
  5. MYCOPHENOLATE MEFETIL [Suspect]
     Route: 048
     Dates: start: 20030131, end: 20030730
  6. MYCOPHENOLATE MEFETIL [Suspect]
     Route: 048
     Dates: start: 20030801, end: 20051109
  7. MYCOPHENOLATE MEFETIL [Suspect]
     Route: 048
     Dates: start: 20051110, end: 20051223
  8. PROGRAF [Suspect]
     Dosage: NOTE: 336.5 MG, DRUG NAME: TACROLIMUS HYDRATE
     Route: 048
  9. BASEN [Suspect]
     Route: 048
  10. PRAVASTATIN SODIUM [Concomitant]
  11. BUFFERIN [Concomitant]
  12. MYCOPHENOLATE MEFETIL [Suspect]
     Dosage: DOSE DECREASED
     Route: 048
     Dates: start: 20051224, end: 20051225

REACTIONS (10)
  - DIARRHOEA [None]
  - BLOOD IMMUNOGLOBULIN G DECREASED [None]
  - DIABETES MELLITUS [None]
  - NEUTROPHIL COUNT DECREASED [None]
  - BRONCHITIS [None]
  - MYOCARDIAL OEDEMA [None]
  - HYPOCHROMIC ANAEMIA [None]
  - PANCYTOPENIA [None]
  - HYPERGLYCAEMIA [None]
  - BASEDOW'S DISEASE [None]
